FAERS Safety Report 23020173 (Version 1)
Quarter: 2023Q4

REPORT INFORMATION
  Report Type: Spontaneous
  Country: US (occurrence: US)
  Receive Date: 20231003
  Receipt Date: 20231003
  Transmission Date: 20240110
  Serious: Yes (Other)
  Sender: FDA-Public Use
  Company Number: US-GSKCCFUS-Case-01817048_AE-101662

PATIENT
  Sex: Female

DRUGS (7)
  1. TRELEGY ELLIPTA [Suspect]
     Active Substance: FLUTICASONE FUROATE\UMECLIDINIUM BROMIDE\VILANTEROL TRIFENATATE
     Indication: Product used for unknown indication
     Dosage: UNK
  2. BENADRYL [Concomitant]
     Active Substance: DIPHENHYDRAMINE HYDROCHLORIDE
     Indication: Rash
     Dosage: UNK
  3. BENADRYL [Concomitant]
     Active Substance: DIPHENHYDRAMINE HYDROCHLORIDE
     Indication: Urticaria
  4. HYDROCORTISONE [Concomitant]
     Active Substance: HYDROCORTISONE
     Indication: Rash
     Dosage: UNK
  5. HYDROCORTISONE [Concomitant]
     Active Substance: HYDROCORTISONE
     Indication: Urticaria
  6. ZYRTEC [Concomitant]
     Active Substance: CETIRIZINE HYDROCHLORIDE
     Indication: Rash
     Dosage: UNK
  7. ZYRTEC [Concomitant]
     Active Substance: CETIRIZINE HYDROCHLORIDE
     Indication: Urticaria

REACTIONS (3)
  - Anaphylactic reaction [Unknown]
  - Rash [Not Recovered/Not Resolved]
  - Urticaria [Unknown]
